FAERS Safety Report 8055959-0 (Version None)
Quarter: 2012Q1

REPORT INFORMATION
  Report Type: 
  Country: None (occurrence: None)
  Receive Date: 20120119
  Receipt Date: 20120109
  Transmission Date: 20120608
  Serious: Yes (Hospitalization)
  Sender: FDA-Public Use
  Company Number: US-BAYER-2010-002081

PATIENT
  Age: 20 Year
  Sex: Female
  Weight: 54.422 kg

DRUGS (8)
  1. DROSPIRENONE AND ETHINYL ESTRADIOL [Suspect]
     Dosage: UNK
     Dates: start: 20040801, end: 20090901
  2. SINGULAIR [Concomitant]
     Indication: ASTHMA
     Dosage: UNK
     Route: 048
     Dates: start: 20050901
  3. MOTRIN [Concomitant]
     Indication: HEADACHE
     Route: 048
  4. TOPAMAX [Concomitant]
     Indication: MIGRAINE
     Route: 048
  5. IMITREX [Concomitant]
     Indication: MIGRAINE
     Route: 048
  6. YAZ [Suspect]
     Indication: PRODUCT USED FOR UNKNOWN INDICATION
     Dosage: UNK
     Dates: start: 20040801, end: 20090901
  7. VIVAGLOBIN 33 [Concomitant]
     Indication: IMMUNODEFICIENCY
  8. YASMIN [Suspect]
     Indication: PRODUCT USED FOR UNKNOWN INDICATION
     Dosage: UNK
     Dates: start: 20040801, end: 20040901

REACTIONS (6)
  - CEREBROVASCULAR ACCIDENT [None]
  - SUBDURAL HAEMORRHAGE [None]
  - CEREBRAL HAEMORRHAGE [None]
  - THROMBOSIS [None]
  - SUPERIOR SAGITTAL SINUS THROMBOSIS [None]
  - SUBARACHNOID HAEMORRHAGE [None]
